FAERS Safety Report 15772586 (Version 3)
Quarter: 2019Q1

REPORT INFORMATION
  Report Type: Report from Study
  Country: US (occurrence: US)
  Receive Date: 20181228
  Receipt Date: 20190323
  Transmission Date: 20190417
  Serious: Yes (Other)
  Sender: FDA-Public Use
  Company Number: PHEH2018US054626

PATIENT
  Sex: Male
  Weight: 99.79 kg

DRUGS (1)
  1. COSENTYX [Suspect]
     Active Substance: SECUKINUMAB
     Indication: PSORIATIC ARTHROPATHY
     Dosage: 300 MG, QMO
     Route: 058
     Dates: start: 201809

REACTIONS (5)
  - Psoriatic arthropathy [Unknown]
  - Drug effect incomplete [Unknown]
  - Psoriasis [Unknown]
  - Nasopharyngitis [Unknown]
  - Arthralgia [Unknown]
